FAERS Safety Report 25508205 (Version 1)
Quarter: 2025Q3

REPORT INFORMATION
  Report Type: Report from Study
  Country: US (occurrence: US)
  Receive Date: 20250703
  Receipt Date: 20250703
  Transmission Date: 20251020
  Serious: Yes (Other)
  Sender: ASTELLAS
  Company Number: US-ASTELLAS-2025-AER-017042

PATIENT
  Age: 37 Year
  Sex: Female

DRUGS (2)
  1. FEZOLINETANT [Suspect]
     Active Substance: FEZOLINETANT
     Indication: Product used for unknown indication
     Route: 050
  2. FEZOLINETANT [Suspect]
     Active Substance: FEZOLINETANT
     Route: 050
     Dates: start: 20250613, end: 20250613

REACTIONS (12)
  - Pelvic pain [Not Recovered/Not Resolved]
  - Abdominal pain upper [Recovered/Resolved]
  - Pelvic pain [Recovered/Resolved]
  - Condition aggravated [Recovered/Resolved]
  - Skin odour abnormal [Unknown]
  - Retching [Unknown]
  - Migraine [Unknown]
  - Parosmia [Unknown]
  - Nausea [Unknown]
  - Diarrhoea [Unknown]
  - Mucous stools [Unknown]
  - Therapeutic response unexpected [Unknown]

NARRATIVE: CASE EVENT DATE: 20250614
